FAERS Safety Report 4607864-7 (Version None)
Quarter: 2005Q1

REPORT INFORMATION
  Report Type: 
  Country: None (occurrence: None)
  Receive Date: 20050311
  Receipt Date: 20050228
  Transmission Date: 20050727
  Serious: Yes (Life-Threatening, Other)
  Sender: FDA-Public Use
  Company Number: 2005014415

PATIENT
  Age: 64 Year
  Sex: Male
  Weight: 48.7 kg

DRUGS (15)
  1. SULPERAZON            (SULBACTAM, CEFOPERAZONE) [Suspect]
     Indication: PYREXIA
     Dosage: 2 GRAM (1 GRAM, 2 IN 1 D), INTRAVENOUS
     Route: 042
     Dates: start: 20040901, end: 20041223
  2. DIURETICS (DIURETICS) [Concomitant]
  3. ASPARTATE POTASSIUM (ASPARTATE POTASSIUM) [Concomitant]
  4. TEPRENONE (TEPRENONE) [Concomitant]
  5. MADOPAR              (BENSERAZIDE HYDROCHLORIDE, LEVODOPA) [Concomitant]
  6. FUROSEMIDE           (FUROSEMIDE) [Concomitant]
  7. BISOPROLOL FUMARATE [Concomitant]
  8. BUFFERIN [Concomitant]
  9. DIGOXIN [Concomitant]
  10. MEXILETINE HYDROCHLORIDE [Concomitant]
  11. FAMOTIDINE [Concomitant]
  12. MAGNESIUM OXIDE (MAGNESIUM OXIDE) [Concomitant]
  13. ETIZOLAM (ETIZOLAM) [Concomitant]
  14. ALOSENN (ACHILLEA, RUBIA ROOT TINCTURE, SENNA FRUIT, SENNA LEAF, TARAX [Concomitant]
  15. PIPERACILLIN [Concomitant]

REACTIONS (11)
  - ANAPHYLACTIC SHOCK [None]
  - BLOOD PRESSURE DECREASED [None]
  - BLOOD PRESSURE INCREASED [None]
  - CARDIO-RESPIRATORY ARREST [None]
  - DYSPNOEA [None]
  - ECZEMA [None]
  - ERYTHEMA [None]
  - HYPOXIC ENCEPHALOPATHY [None]
  - LIP DISCOLOURATION [None]
  - PALLOR [None]
  - TREMOR [None]
